FAERS Safety Report 25365414 (Version 3)
Quarter: 2025Q3

REPORT INFORMATION
  Report Type: Report from Study
  Country: JP (occurrence: JP)
  Receive Date: 20250527
  Receipt Date: 20250707
  Transmission Date: 20251020
  Serious: Yes (Hospitalization)
  Sender: EISAI
  Company Number: JP-Eisai-202502183_LEQ_P_1

PATIENT
  Age: 84 Year
  Sex: Female

DRUGS (5)
  1. LEQEMBI [Suspect]
     Active Substance: LECANEMAB-IRMB
     Indication: Dementia Alzheimer^s type
  2. ATORVASTATIN [Concomitant]
     Active Substance: ATORVASTATIN
  3. ETIZOLAM [Concomitant]
     Active Substance: ETIZOLAM
  4. ELDECALCITOL [Concomitant]
     Active Substance: ELDECALCITOL
  5. LATACHIMO [Concomitant]

REACTIONS (1)
  - Infusion related reaction [Recovering/Resolving]

NARRATIVE: CASE EVENT DATE: 20250521
